FAERS Safety Report 4616789-2 (Version None)
Quarter: 2005Q2

REPORT INFORMATION
  Report Type: 
  Country: None (occurrence: None)
  Receive Date: 20050311
  Receipt Date: 20050114
  Transmission Date: 20051028
  Serious: Yes (Hospitalization)
  Sender: FDA-Public Use
  Company Number: 2005-00069

PATIENT
  Age: 67 Year
  Sex: Female
  Weight: 55 kg

DRUGS (11)
  1. VELCADE [Suspect]
     Indication: MULTIPLE MYELOMA
     Dosage: INTRAVENOUS
     Route: 042
     Dates: start: 20041001
  2. PAMIDRONIC ACID (PAMIDRONIC ACID) [Concomitant]
  3. PERCOCET [Concomitant]
  4. KYTRIL [Concomitant]
  5. DEXAMETHASONE [Concomitant]
  6. EPOGEN [Concomitant]
  7. BACTRIM [Concomitant]
  8. METHADONE HCL [Concomitant]
  9. NEURONTIN [Concomitant]
  10. FERROUS SULFATE TAB [Concomitant]
  11. DILAUDID [Concomitant]

REACTIONS (3)
  - DEHYDRATION [None]
  - FATIGUE [None]
  - PLATELET COUNT DECREASED [None]
